FAERS Safety Report 7621635-9 (Version None)
Quarter: 2011Q3

REPORT INFORMATION
  Report Type: 
  Country: None (occurrence: None)
  Receive Date: 20110719
  Receipt Date: 20101026
  Transmission Date: 20111222
  Serious: Yes (Life-Threatening, Other)
  Sender: FDA-Public Use
  Company Number: US-BAYER-201038561NA

PATIENT
  Age: 37 Year
  Sex: Male

DRUGS (2)
  1. PREDNISONE [Concomitant]
  2. AVELOX [Suspect]
     Indication: NASOPHARYNGITIS
     Dosage: 400 MG (DAILY DOSE), , ORAL
     Route: 048
     Dates: start: 20101012, end: 20101012

REACTIONS (2)
  - SWELLING FACE [None]
  - RASH [None]
